FAERS Safety Report 15575088 (Version 3)
Quarter: 2019Q2

REPORT INFORMATION
  Report Type: Report from Study
  Country: US (occurrence: US)
  Receive Date: 20181101
  Receipt Date: 20190423
  Transmission Date: 20190711
  Serious: No
  Sender: FDA-Public Use
  Company Number: PHHY2018US008903

PATIENT
  Age: 43 Year
  Sex: Female

DRUGS (2)
  1. GILENYA [Suspect]
     Active Substance: FINGOLIMOD HYDROCHLORIDE
     Indication: MULTIPLE SCLEROSIS
     Dosage: UNK, QD
     Route: 048
  2. NAPROXEN SODIUM. [Concomitant]
     Active Substance: NAPROXEN SODIUM
     Indication: PAIN
     Dosage: UNK
     Route: 065
     Dates: start: 20181217

REACTIONS (6)
  - Headache [Recovered/Resolved]
  - Dysfunctional uterine bleeding [Recovered/Resolved]
  - Muscle spasticity [Unknown]
  - Paronychia [Recovered/Resolved]
  - Blood alkaline phosphatase increased [Unknown]
  - White blood cell count decreased [Unknown]

NARRATIVE: CASE EVENT DATE: 20171213
